FAERS Safety Report 5712754-2 (Version None)
Quarter: 2008Q2

REPORT INFORMATION
  Report Type: 
  Country: None (occurrence: None)
  Receive Date: 20080422
  Receipt Date: 20080415
  Transmission Date: 20081010
  Serious: Yes (Hospitalization)
  Sender: FDA-Public Use
  Company Number: US-JNJFOC-20080206514

PATIENT
  Sex: Female
  Weight: 66.68 kg

DRUGS (4)
  1. LEVAQUIN [Suspect]
     Indication: GASTROINTESTINAL INFECTION
     Route: 042
  2. CIPROFLOXACIN [Suspect]
     Indication: GASTROINTESTINAL INFECTION
     Route: 048
  3. FLAGYL [Concomitant]
     Route: 065
  4. ASACOL [Concomitant]
     Route: 065

REACTIONS (2)
  - ANAPHYLACTIC REACTION [None]
  - TRISMUS [None]
